FAERS Safety Report 16060319 (Version 1)
Quarter: 2019Q1

REPORT INFORMATION
  Report Type: Spontaneous
  Country: FR (occurrence: FR)
  Receive Date: 20190312
  Receipt Date: 20190312
  Transmission Date: 20190418
  Serious: Yes (Other)
  Sender: FDA-Public Use
  Company Number: FR-TEVA-2019-FR-1008277

PATIENT
  Age: 52 Year
  Sex: Female

DRUGS (5)
  1. COAPROVEL 150 MG/12,5 MG [Concomitant]
  2. ANDROCUR 50 MG [Suspect]
     Active Substance: CYPROTERONE ACETATE
     Indication: HIRSUTISM
     Dosage: 12.5 MILLIGRAM DAILY;
     Route: 048
     Dates: start: 1997, end: 201605
  3. ESTRADIOL. [Suspect]
     Active Substance: ESTRADIOL
     Indication: PRODUCT USED FOR UNKNOWN INDICATION
     Route: 003
     Dates: end: 2016
  4. DETENSIEL 10MG [Concomitant]
  5. VICTOZA [Concomitant]
     Active Substance: LIRAGLUTIDE

REACTIONS (1)
  - Meningioma [Not Recovered/Not Resolved]

NARRATIVE: CASE EVENT DATE: 2015
